FAERS Safety Report 7446166-0 (Version None)
Quarter: 2011Q2

REPORT INFORMATION
  Report Type: 
  Country: None (occurrence: None)
  Receive Date: 20110429
  Receipt Date: 20110426
  Transmission Date: 20111010
  Serious: Yes (Other)
  Sender: FDA-Public Use
  Company Number: B0715949A

PATIENT
  Age: 43 Year
  Sex: Female

DRUGS (1)
  1. AVAMYS [Suspect]
     Dosage: 440MG PER DAY
     Route: 045
     Dates: start: 20101015, end: 20101015

REACTIONS (3)
  - NAUSEA [None]
  - HEADACHE [None]
  - BLOOD PRESSURE INCREASED [None]
